FAERS Safety Report 11254758 (Version 1)
Quarter: 2015Q3

REPORT INFORMATION
  Report Type: Spontaneous
  Country: US (occurrence: None)
  Receive Date: 20150708
  Receipt Date: 20150708
  Transmission Date: 20151125
  Serious: Yes (Disabling)
  Sender: FDA-Public Use
  Company Number: None

PATIENT
  Age: 37 Year
  Sex: Female
  Weight: 46.27 kg

DRUGS (8)
  1. VITAMIN D [Concomitant]
     Active Substance: CHOLECALCIFEROL
  2. ENTOCORT [Suspect]
     Active Substance: BUDESONIDE
     Indication: CROHN^S DISEASE
     Dosage: 1
     Route: 048
     Dates: start: 20150401, end: 20150603
  3. ENTOCORT [Suspect]
     Active Substance: BUDESONIDE
     Indication: INFLAMMATION
     Dosage: 1
     Route: 048
     Dates: start: 20150401, end: 20150603
  4. ADRENAL SUPPORT [Concomitant]
     Active Substance: AMERICAN GINSENG\ARSENIC TRIOXIDE\CONVALLARIA MAJALIS\CORTISONE ACETATE\CROTALUS HORRIDUS HORRIDUS VENOM\EPINEPHRINE\HOPS\IRON\OYSTER SHELL CALCIUM CARBONATE, CRUDE\PHOSPHORIC ACID\PHOSPHORUS\SELENIUM\SEPIA OFFICINALIS JUICE\STRYCHNOS NUX-VOMICA SEED\THYROID, PORCINE
  5. VITAMIN B [Concomitant]
     Active Substance: VITAMIN B
  6. CRUTCHES [Concomitant]
  7. WHEELCHAIR [Concomitant]
     Active Substance: DEVICE
  8. ENZYMES [Concomitant]

REACTIONS (4)
  - Pain in extremity [None]
  - Peripheral swelling [None]
  - Gait disturbance [None]
  - Feeling abnormal [None]

NARRATIVE: CASE EVENT DATE: 20150603
